FAERS Safety Report 6835776-7 (Version None)
Quarter: 2010Q3

REPORT INFORMATION
  Report Type: 
  Country: None (occurrence: None)
  Receive Date: 20100712
  Receipt Date: 20100712
  Transmission Date: 20110219
  Serious: Yes (Disabling)
  Sender: FDA-Public Use
  Company Number: None

PATIENT
  Age: 62 Year
  Sex: Female
  Weight: 55.3388 kg

DRUGS (1)
  1. ALENDRONATE SODIUM [Suspect]
     Indication: OSTEOPOROSIS
     Dosage: 1 TAB Q2WEEKS PO
     Route: 048
     Dates: start: 20091115, end: 20100331

REACTIONS (3)
  - BONE GRAFT [None]
  - JAW DISORDER [None]
  - TOOTH DISORDER [None]
